FAERS Safety Report 15902023 (Version 1)
Quarter: 2019Q1

REPORT INFORMATION
  Report Type: Spontaneous
  Country: US (occurrence: US)
  Receive Date: 20190201
  Receipt Date: 20190201
  Transmission Date: 20190417
  Serious: Yes (Other)
  Sender: FDA-Public Use
  Company Number: US-UNICHEM PHARMACEUTICALS (USA) INC-UCM201901-000039

PATIENT
  Age: 36 Day
  Sex: Male

DRUGS (1)
  1. METRONIDAZOLE. [Suspect]
     Active Substance: METRONIDAZOLE

REACTIONS (6)
  - Foetal exposure during pregnancy [Unknown]
  - Hypothermia [Recovered/Resolved]
  - Decreased activity [Recovered/Resolved]
  - Toxicity to various agents [Unknown]
  - Failure to thrive [Recovered/Resolved]
  - Bradycardia [Recovered/Resolved]
